FAERS Safety Report 20214302 (Version 1)
Quarter: 2021Q4

REPORT INFORMATION
  Report Type: Spontaneous
  Country: PL (occurrence: PL)
  Receive Date: 20211221
  Receipt Date: 20211221
  Transmission Date: 20220303
  Serious: Yes (Death, Life-Threatening, Other)
  Sender: FDA-Public Use
  Company Number: PL-AMGEN-POLSP2021199540

PATIENT

DRUGS (3)
  1. FILGRASTIM [Suspect]
     Active Substance: FILGRASTIM
     Indication: Haematopoietic stem cell mobilisation
     Dosage: 5 MICROGRAM/KILOGRAM, QD
     Route: 058
  2. FILGRASTIM [Suspect]
     Active Substance: FILGRASTIM
     Indication: Prophylaxis
  3. MELPHALAN [Suspect]
     Active Substance: MELPHALAN
     Indication: Plasma cell myeloma
     Dosage: 200 MILLIGRAM/SQ. METER
     Route: 065

REACTIONS (29)
  - Death [Fatal]
  - Pneumonia [Unknown]
  - Device related infection [Unknown]
  - Genital infection [Unknown]
  - Proctitis [Unknown]
  - H1N1 influenza [Unknown]
  - Febrile neutropenia [Unknown]
  - Hypokalaemia [Unknown]
  - Hyponatraemia [Unknown]
  - Hepatic enzyme increased [Unknown]
  - Blood bilirubin increased [Unknown]
  - Cystitis haemorrhagic [Unknown]
  - Cardiac failure [Unknown]
  - Glaucoma [Unknown]
  - Colon cancer [Unknown]
  - Cerebrovascular accident [Unknown]
  - Disease progression [Unknown]
  - Thrombosis [Unknown]
  - Osteolysis [Unknown]
  - Mucosal inflammation [Unknown]
  - Nausea [Unknown]
  - Vomiting [Unknown]
  - Diarrhoea [Unknown]
  - Upper respiratory tract infection [Unknown]
  - Therapeutic product effect incomplete [Unknown]
  - Soft tissue infection [Unknown]
  - Colitis [Unknown]
  - Herpes zoster [Unknown]
  - Pneumonitis [Unknown]
